FAERS Safety Report 9345298 (Version 3)
Quarter: 2014Q1

REPORT INFORMATION
  Report Type: Spontaneous
  Country: US (occurrence: US)
  Receive Date: 20130613
  Receipt Date: 20140227
  Transmission Date: 20141002
  Serious: Yes (Hospitalization)
  Sender: FDA-Public Use
  Company Number: US-B.I. PHARMACEUTICALS,INC./RIDGEFIELD-2013-BI-16116BP

PATIENT
  Sex: Female
  Weight: 61.69 kg

DRUGS (16)
  1. PRADAXA [Suspect]
     Indication: CEREBROVASCULAR ACCIDENT PROPHYLAXIS
     Dosage: 300 MG
     Route: 065
     Dates: start: 20110903, end: 20120510
  2. PRADAXA [Suspect]
     Indication: THROMBOSIS PROPHYLAXIS
  3. PRADAXA [Suspect]
     Indication: ATRIAL FIBRILLATION
  4. EPOPROSTENOL [Suspect]
     Indication: PULMONARY HYPERTENSION
     Route: 042
     Dates: start: 201108
  5. ASPIRIN [Concomitant]
     Route: 065
  6. REVATIO [Concomitant]
     Indication: PULMONARY HYPERTENSION
     Route: 048
  7. SPIRONOLACTONE [Concomitant]
     Dosage: 25 MG
     Route: 048
  8. DIGOXIN [Concomitant]
     Route: 065
  9. FUROSEMIDE [Concomitant]
     Dosage: 40 MG
     Route: 048
  10. LETAIRIS [Concomitant]
     Indication: PULMONARY HYPERTENSION
     Dosage: 10 MG
     Route: 065
  11. AMBIEN [Concomitant]
     Route: 065
  12. MELOXICAM [Concomitant]
     Route: 065
  13. VENTOLIN [Concomitant]
     Dosage: 2 PUF
     Route: 065
  14. CALCIUM WITH D3 [Concomitant]
     Dosage: 2400 MG
     Route: 065
  15. XALATAN [Concomitant]
     Route: 065
  16. DORZOLAMIDE [Concomitant]
     Dosage: 20 ML
     Route: 065

REACTIONS (4)
  - Gastrointestinal haemorrhage [Recovered/Resolved]
  - Coagulopathy [Unknown]
  - Anaemia [Unknown]
  - Thrombocytopenia [Unknown]
